FAERS Safety Report 9499032 (Version 2)
Quarter: 2013Q4

REPORT INFORMATION
  Report Type: Spontaneous
  Country: DE (occurrence: DE)
  Receive Date: 20130904
  Receipt Date: 20131008
  Transmission Date: 20140711
  Serious: Yes (Other)
  Sender: FDA-Public Use
  Company Number: DE-BAXTER-2013BAX034309

PATIENT
  Age: 10 Year
  Sex: Female

DRUGS (4)
  1. KIOVIG (1 G/10 ML) [Suspect]
     Indication: ENCEPHALOPATHY
     Route: 065
  2. CEFOTAXIME [Suspect]
     Indication: ENCEPHALOPATHY
     Route: 065
  3. ACYCLOVIR [Suspect]
     Indication: ENCEPHALOPATHY
     Route: 065
  4. METHYLPREDNISONE [Suspect]
     Indication: ENCEPHALOPATHY
     Route: 065

REACTIONS (1)
  - Drug ineffective [Not Recovered/Not Resolved]
